FAERS Safety Report 10213625 (Version 1)
Quarter: 2014Q2

REPORT INFORMATION
  Report Type: Spontaneous
  Country: US (occurrence: US)
  Receive Date: 20140603
  Receipt Date: 20140603
  Transmission Date: 20141212
  Serious: Yes (Hospitalization, Other)
  Sender: FDA-Public Use
  Company Number: US-JNJFOC-20140509939

PATIENT
  Age: 36 Year
  Sex: Female
  Weight: 77.11 kg

DRUGS (21)
  1. TYLENOL EXTRA STRENGTH [Suspect]
     Indication: HEADACHE
     Dosage: 4 TABLETS IN ONE DAY
     Route: 065
     Dates: start: 20110917, end: 20110920
  2. TYLENOL EXTRA STRENGTH [Suspect]
     Indication: NASOPHARYNGITIS
     Dosage: 4 TABLETS IN ONE DAY
     Route: 065
     Dates: start: 20110917, end: 20110920
  3. TYLENOL COLD AND FLU [Suspect]
     Indication: HEADACHE
     Dosage: 4 TABLETS IN ONE DAY
     Route: 065
  4. TYLENOL COLD AND FLU [Suspect]
     Indication: NASOPHARYNGITIS
     Dosage: 4 TABLETS IN ONE DAY
     Route: 065
  5. IBUPROFEN [Concomitant]
     Indication: PAIN
     Route: 065
     Dates: start: 2011
  6. GABAPENTIN [Concomitant]
     Indication: NERVE INJURY
     Route: 065
     Dates: start: 2005, end: 2011
  7. METOCLOPRAMIDE [Concomitant]
     Indication: DYSPEPSIA
     Route: 065
  8. RANITIDINE [Concomitant]
     Indication: DYSPEPSIA
     Route: 065
  9. FERROUS SULFATE [Concomitant]
     Indication: MINERAL SUPPLEMENTATION
     Route: 065
  10. AMOXICILLIN [Concomitant]
     Indication: INFECTION
     Route: 065
  11. OXYCODONE [Concomitant]
     Indication: PAIN
     Route: 065
  12. NYSTATIN [Concomitant]
     Indication: RASH
     Route: 065
  13. VANCOCIN [Concomitant]
     Indication: INFECTION
     Route: 065
  14. MEDROXYPROGESTERONE [Concomitant]
     Indication: MENSTRUATION IRREGULAR
     Route: 065
  15. OMEPRAZOLE [Concomitant]
     Indication: DYSPEPSIA
     Route: 065
  16. HYDROCODONE [Concomitant]
     Indication: PAIN
     Route: 065
  17. MAPAP [Concomitant]
     Indication: PAIN
     Route: 065
  18. BENADRYL [Concomitant]
     Indication: PRURITUS
     Route: 048
     Dates: start: 20110916, end: 20111016
  19. MORPHINE [Concomitant]
     Indication: PAIN
     Route: 042
     Dates: start: 20110916, end: 20111016
  20. ZOFRAN [Concomitant]
     Indication: NAUSEA
     Route: 042
     Dates: start: 20110916, end: 20111016
  21. PROTONIX [Concomitant]
     Indication: PRODUCT USED FOR UNKNOWN INDICATION
     Route: 048
     Dates: start: 20110916, end: 20111016

REACTIONS (6)
  - Acute hepatic failure [Recovering/Resolving]
  - Diabetes mellitus [Unknown]
  - Depression [Unknown]
  - Coagulopathy [Unknown]
  - Hepatic encephalopathy [Unknown]
  - Anxiety [Unknown]
